FAERS Safety Report 9657273 (Version 1)
Quarter: 2013Q4

REPORT INFORMATION
  Report Type: Spontaneous
  Country: US (occurrence: US)
  Receive Date: 20131030
  Receipt Date: 20131030
  Transmission Date: 20140711
  Serious: Yes (Other)
  Sender: FDA-Public Use
  Company Number: US-SA-2013SA109903

PATIENT
  Sex: Male

DRUGS (13)
  1. PLAVIX [Suspect]
     Indication: TRANSIENT ISCHAEMIC ATTACK
     Route: 065
  2. PLAVIX [Suspect]
     Indication: STENT PLACEMENT
     Route: 065
  3. SPRYCEL [Suspect]
     Indication: CHRONIC MYELOID LEUKAEMIA
     Route: 065
  4. SPRYCEL [Suspect]
     Indication: CHRONIC MYELOID LEUKAEMIA
     Route: 065
  5. ASPIRIN [Concomitant]
  6. ATENOLOL [Concomitant]
  7. AVODART [Concomitant]
  8. ATORVASTATIN [Concomitant]
  9. SILODOSIN [Concomitant]
  10. CENTRUM SILVER [Concomitant]
  11. MULTIVITAMINS [Concomitant]
  12. COLACE [Concomitant]
  13. VITAMIN C [Concomitant]

REACTIONS (9)
  - Chronic myeloid leukaemia [Unknown]
  - White blood cell count increased [Unknown]
  - Platelet count decreased [Unknown]
  - Haemoglobin decreased [Unknown]
  - Fatigue [Unknown]
  - Sleep disorder [Unknown]
  - Diarrhoea [Recovered/Resolved]
  - Stomatitis [Unknown]
  - Headache [Unknown]
